FAERS Safety Report 4934887-0 (Version None)
Quarter: 2006Q1

REPORT INFORMATION
  Report Type: 
  Country: None (occurrence: None)
  Receive Date: 20060302
  Receipt Date: 20060217
  Transmission Date: 20060701
  Serious: Yes (Other)
  Sender: FDA-Public Use
  Company Number: 13170

PATIENT
  Age: 74 Year
  Sex: Male

DRUGS (4)
  1. PAMIDRONATE DISODIUM [Suspect]
     Indication: HYPERCALCAEMIA OF MALIGNANCY
     Dosage: 90 MG FREQ IV
     Route: 042
     Dates: start: 20051201, end: 20051201
  2. OMEPRAZOLE [Concomitant]
  3. DICLOFENAC EPOLAMINE PATCH [Concomitant]
  4. FLUCONAZOLE [Concomitant]

REACTIONS (3)
  - COAGULOPATHY [None]
  - HAEMATEMESIS [None]
  - LIVER FUNCTION TEST ABNORMAL [None]
